FAERS Safety Report 5085144-6 (Version None)
Quarter: 2006Q3

REPORT INFORMATION
  Report Type: 
  Country: None (occurrence: None)
  Receive Date: 20060720
  Receipt Date: 20050526
  Transmission Date: 20061208
  Serious: Yes (Other)
  Sender: FDA-Public Use
  Company Number: 2005065397

PATIENT
  Age: 87 Year
  Sex: Female
  Weight: 56.6996 kg

DRUGS (5)
  1. CELEBREX [Suspect]
     Indication: ARTHRITIS
     Dosage: 200 MG (200 MG,1 IN 1 D),ORAL
     Route: 048
     Dates: end: 20040701
  2. MAXZIDE [Concomitant]
  3. ACIPHEX [Concomitant]
  4. FLOVENT [Concomitant]
  5. LANOXIN [Concomitant]

REACTIONS (5)
  - ARTERIOSCLEROSIS CORONARY ARTERY [None]
  - CARDIAC FAILURE CONGESTIVE [None]
  - CELLULITIS [None]
  - HYPERTENSION [None]
  - STASIS DERMATITIS [None]
